FAERS Safety Report 15750224 (Version 2)
Quarter: 2019Q1

REPORT INFORMATION
  Report Type: Spontaneous
  Country: US (occurrence: US)
  Receive Date: 20181221
  Receipt Date: 20190128
  Transmission Date: 20190417
  Serious: Yes (Hospitalization)
  Sender: FDA-Public Use
  Company Number: US-JNJFOC-20181219396

PATIENT
  Age: 32 Year
  Sex: Female
  Weight: 119.75 kg

DRUGS (31)
  1. EPINEPHRINE HCL [Concomitant]
     Active Substance: EPINEPHRINE
     Dosage: AS DIRECTED
     Route: 030
     Dates: start: 20181115, end: 20181219
  2. DAPSONE. [Concomitant]
     Active Substance: DAPSONE
     Route: 048
     Dates: start: 20181221
  3. ONDANSETRON HCL [Concomitant]
     Active Substance: ONDANSETRON HYDROCHLORIDE
     Dosage: AS NEEDED
     Route: 048
     Dates: end: 20181221
  4. SODIUM CHLORIDE. [Concomitant]
     Active Substance: SODIUM CHLORIDE
     Indication: FLUID REPLACEMENT
     Route: 065
     Dates: start: 20181115, end: 20181219
  5. MEROPENEM. [Concomitant]
     Active Substance: MEROPENEM
     Indication: INFECTION
     Route: 065
     Dates: start: 20181207, end: 20181221
  6. CALCIUM CARBONATE. [Concomitant]
     Active Substance: CALCIUM CARBONATE
     Route: 048
     Dates: end: 20181221
  7. LIDOCAINE. [Concomitant]
     Active Substance: LIDOCAINE
     Dosage: AS NEEDED
     Route: 065
     Dates: end: 20181221
  8. ERTAPENEM. [Concomitant]
     Active Substance: ERTAPENEM SODIUM
     Route: 042
     Dates: start: 20181108, end: 20181113
  9. TAMSULOSIN HCL [Concomitant]
     Active Substance: TAMSULOSIN HYDROCHLORIDE
     Route: 048
     Dates: end: 20181221
  10. HEPARIN [Concomitant]
     Active Substance: HEPARIN SODIUM
     Dosage: AS NEEDED
     Route: 042
     Dates: start: 20181108, end: 20181221
  11. NYSTATIN. [Concomitant]
     Active Substance: NYSTATIN
     Dosage: 100000 EX (SIC) AS NEEDED
     Route: 065
     Dates: end: 20181221
  12. OXYCODONE HYDROCHLORIDE. [Concomitant]
     Active Substance: OXYCODONE HYDROCHLORIDE
     Route: 048
     Dates: end: 20181221
  13. PRAMIPEXOLE DIHYDROCHLORIDE. [Concomitant]
     Active Substance: PRAMIPEXOLE DIHYDROCHLORIDE
     Dosage: DOSAGE HS/PRN
     Route: 048
     Dates: end: 20181221
  14. LYRICA [Concomitant]
     Active Substance: PREGABALIN
     Dosage: AS NEEDED
     Route: 048
  15. DICYCLOMINE HCL [Concomitant]
     Active Substance: DICYCLOMINE HYDROCHLORIDE
     Route: 048
     Dates: end: 20181221
  16. LITHIUM CARBONATE. [Concomitant]
     Active Substance: LITHIUM CARBONATE
     Route: 048
     Dates: end: 20181221
  17. ATORVASTATIN CALCIUM. [Concomitant]
     Active Substance: ATORVASTATIN CALCIUM
     Route: 048
     Dates: end: 20181221
  18. STELARA [Suspect]
     Active Substance: USTEKINUMAB
     Indication: CROHN^S DISEASE
     Dosage: 250 ML IV INFUSION VIA GRAVITY.
     Route: 042
     Dates: start: 20181213, end: 20181213
  19. DIPHENHYDRAMINE HCL [Concomitant]
     Active Substance: DIPHENHYDRAMINE HYDROCHLORIDE
     Indication: NAUSEA
     Route: 042
     Dates: start: 20181115, end: 20181219
  20. ALPRAZOLAM. [Concomitant]
     Active Substance: ALPRAZOLAM
     Indication: SLEEP DISORDER
     Route: 065
  21. METHENAMINE MANDELATE. [Concomitant]
     Active Substance: METHENAMINE MANDELATE
     Route: 048
  22. PANTOPRAZOLE SODIUM. [Concomitant]
     Active Substance: PANTOPRAZOLE SODIUM
     Route: 048
     Dates: end: 20181221
  23. XARELTO [Concomitant]
     Active Substance: RIVAROXABAN
     Route: 048
     Dates: end: 20181221
  24. VITAMIN D [Concomitant]
     Active Substance: CHOLECALCIFEROL
     Dosage: 50000 UNIT
     Route: 048
     Dates: end: 20181221
  25. SERTRALINE HCL [Concomitant]
     Active Substance: SERTRALINE HYDROCHLORIDE
     Route: 048
     Dates: end: 20181221
  26. PROAIR HFA [Concomitant]
     Active Substance: ALBUTEROL SULFATE
     Dosage: 108 (90 BASE) IN AS NEEDED
     Route: 065
     Dates: end: 20181221
  27. SODIUM CHLORIDE. [Concomitant]
     Active Substance: SODIUM CHLORIDE
     Indication: FLUID REPLACEMENT
     Route: 065
     Dates: start: 20181115, end: 20181219
  28. FENTANYL. [Concomitant]
     Active Substance: FENTANYL
     Dosage: 25 MCG/HR
     Route: 065
     Dates: end: 20181221
  29. DAPTOMYCIN. [Concomitant]
     Active Substance: DAPTOMYCIN
     Route: 042
     Dates: start: 20181108, end: 20181113
  30. SIMETHICONE (DIMETHICONE) [Concomitant]
     Active Substance: DIMETHICONE
     Route: 048
     Dates: end: 20181221
  31. DIPHENHYDRAMINE HCL [Concomitant]
     Active Substance: DIPHENHYDRAMINE HYDROCHLORIDE
     Dosage: AS NEEDED
     Route: 048
     Dates: end: 20181221

REACTIONS (6)
  - Migraine [Recovered/Resolved]
  - Hot flush [Recovered/Resolved]
  - Paraesthesia [Recovered/Resolved]
  - Pruritus [Recovered/Resolved]
  - Infusion related reaction [Recovered/Resolved]
  - Rash [Recovered/Resolved]

NARRATIVE: CASE EVENT DATE: 20181213
